FAERS Safety Report 8534260-2 (Version None)
Quarter: 2012Q3

REPORT INFORMATION
  Report Type: 
  Country: None (occurrence: None)
  Receive Date: 20120724
  Receipt Date: 20120719
  Transmission Date: 20120928
  Serious: Yes (Hospitalization, Other)
  Sender: FDA-Public Use
  Company Number: CA-ABBOTT-12P-028-0933536-00

PATIENT
  Sex: Female

DRUGS (2)
  1. HUMIRA [Suspect]
     Indication: CROHN'S DISEASE
     Route: 058
     Dates: start: 20120110, end: 20120418
  2. HUMIRA [Suspect]
     Indication: INTESTINAL FISTULA

REACTIONS (6)
  - CROHN'S DISEASE [None]
  - ASCITES [None]
  - GASTROINTESTINAL CARCINOMA [None]
  - HEPATIC NEOPLASM MALIGNANT [None]
  - DRUG RESISTANCE [None]
  - WAIST CIRCUMFERENCE INCREASED [None]
